FAERS Safety Report 8784189 (Version 1)
Quarter: 2012Q4

REPORT INFORMATION
  Report Type: 
  Country: US (occurrence: US)
  Receive Date: 20120913
  Receipt Date: 20120913
  Transmission Date: 20130627
  Serious: Yes (Other)
  Sender: FDA-Public Use
  Company Number: US-VERTEX PHARMACEUTICAL INC.-AE-2012-008905

PATIENT
  Age: 58 Year
  Sex: Female

DRUGS (6)
  1. INCIVEK [Suspect]
     Indication: HEPATITIS C
     Route: 048
     Dates: start: 20120411, end: 20120704
  2. PEGASYS [Concomitant]
     Indication: HEPATITIS C
     Dates: start: 20120411
  3. RIBAPACK [Concomitant]
     Indication: HEPATITIS C
     Dates: start: 20120411
  4. RIBAPACK [Concomitant]
  5. NEUPOGEN [Concomitant]
  6. LEXAPRO [Concomitant]

REACTIONS (1)
  - Anaemia [Unknown]
